FAERS Safety Report 13013677 (Version 1)
Quarter: 2016Q4

REPORT INFORMATION
  Report Type: Report from Study
  Country: AU (occurrence: AU)
  Receive Date: 20161209
  Receipt Date: 20161209
  Transmission Date: 20170207
  Serious: Yes (Death, Other)
  Sender: FDA-Public Use
  Company Number: AU-JNJFOC-20161207938

PATIENT

DRUGS (4)
  1. RISPERIDONE. [Suspect]
     Active Substance: RISPERIDONE
     Indication: DELIRIUM
     Dosage: PATIENTS AGED 65 YEARS OR YOUNGER RECEIVED A 0.5 MG LOADING DOSE WITH FIRST DOSE OF 0.5 MG
     Route: 048
  2. HALOPERIDOL. [Suspect]
     Active Substance: HALOPERIDOL
     Indication: DELIRIUM
     Dosage: PATIENTS AGED 65 YEARS OR YOUNGER RECEIVED A 0.5 MG LOADING DOSE WITH FIRST DOSE OF 0.5 MG
     Route: 048
  3. HALOPERIDOL. [Suspect]
     Active Substance: HALOPERIDOL
     Indication: DELIRIUM
     Dosage: DOSE COULD BE TITRATED BY 0.25 MG ON DAY 1 AND BY 0.5 MG AFTER THAT TO A MAXIMUM DOSE OF 4 MG DAILY
     Route: 048
  4. RISPERIDONE. [Suspect]
     Active Substance: RISPERIDONE
     Indication: DELIRIUM
     Dosage: DOSE COULD BE TITRATED BY 0.25 MG ON DAY 1 AND BY 0.5 MG AFTER THAT TO A MAXIMUM DOSE OF 4 MG DAILY
     Route: 048

REACTIONS (9)
  - Treatment failure [Unknown]
  - Electrocardiogram QT prolonged [Unknown]
  - Toxicity to various agents [Unknown]
  - Extrapyramidal disorder [Unknown]
  - Delirium [Unknown]
  - Death [Fatal]
  - Treatment noncompliance [Unknown]
  - Dysphagia [Unknown]
  - Incorrect dose administered [Unknown]
